FAERS Safety Report 16964835 (Version 1)
Quarter: 2019Q4

REPORT INFORMATION
  Report Type: Spontaneous
  Country: US (occurrence: US)
  Receive Date: 20191028
  Receipt Date: 20191028
  Transmission Date: 20200122
  Serious: No
  Sender: FDA-Public Use
  Company Number: US-ALK-ABELLO A/S-2019AA003212

PATIENT

DRUGS (1)
  1. HISTATROL 1MG/ML (PERCUTANEOUS) [Suspect]
     Active Substance: HISTAMINE PHOSPHATE
     Indication: SKIN TEST
     Dosage: UNK
     Dates: start: 20190904

REACTIONS (1)
  - False negative investigation result [Unknown]

NARRATIVE: CASE EVENT DATE: 20190904
